FAERS Safety Report 9104268 (Version 1)
Quarter: 2013Q1

REPORT INFORMATION
  Report Type: Spontaneous
  Country: US (occurrence: US)
  Receive Date: 20130220
  Receipt Date: 20130220
  Transmission Date: 20140127
  Serious: Yes (Other)
  Sender: FDA-Public Use
  Company Number: US-BAYER-2013-020970

PATIENT
  Age: 80 Year
  Sex: Female
  Weight: 53 kg

DRUGS (5)
  1. ALEVE CAPLET/TABLET,MIDOL EXTENDED RELIEF CAPLET [Suspect]
     Dosage: 2 DF, BID
     Route: 048
  2. BAYER GENUINE ASPIRIN ORIGINAL STRENGTH [Suspect]
     Dosage: 1 DF, QD
     Route: 048
     Dates: start: 201302
  3. ST. JOSEPH ASPIRIN ADULT LOW DOSE [Concomitant]
  4. BAYER ASPIRIN REGIMEN REGULAR 325 MG STRENGTH [Concomitant]
     Route: 048
  5. MULTIVITAMIN [Concomitant]

REACTIONS (4)
  - Dizziness postural [Recovered/Resolved]
  - Gait disturbance [Not Recovered/Not Resolved]
  - Overdose [Not Recovered/Not Resolved]
  - Incorrect drug administration duration [None]
